FAERS Safety Report 7439394-1 (Version None)
Quarter: 2011Q2

REPORT INFORMATION
  Report Type: 
  Country: None (occurrence: None)
  Receive Date: 20110427
  Receipt Date: 20110418
  Transmission Date: 20111010
  Serious: Yes (Disabling, Other)
  Sender: FDA-Public Use
  Company Number: CA-TEVA-277717USA

PATIENT
  Age: 36 Year
  Sex: Male
  Weight: 87.622 kg

DRUGS (1)
  1. VENLAFAXINE HCL [Suspect]
     Dosage: 225 MILLIGRAM;
     Route: 048

REACTIONS (15)
  - DIZZINESS [None]
  - PHOTOPHOBIA [None]
  - POLLAKIURIA [None]
  - WITHDRAWAL SYNDROME [None]
  - DEHYDRATION [None]
  - HALLUCINATION, AUDITORY [None]
  - WEIGHT INCREASED [None]
  - DRY MOUTH [None]
  - HYPERHIDROSIS [None]
  - INSOMNIA [None]
  - PARAESTHESIA [None]
  - DARK CIRCLES UNDER EYES [None]
  - NAUSEA [None]
  - SEXUAL DYSFUNCTION [None]
  - SOMNOLENCE [None]
